FAERS Safety Report 8173905-6 (Version None)
Quarter: 2012Q1

REPORT INFORMATION
  Report Type: 
  Country: None (occurrence: None)
  Receive Date: 20120229
  Receipt Date: 20120216
  Transmission Date: 20120608
  Serious: Yes (Other)
  Sender: FDA-Public Use
  Company Number: US-ELI_LILLY_AND_COMPANY-US201202005821

PATIENT
  Age: 36 Year
  Sex: Female

DRUGS (5)
  1. CYMBALTA [Suspect]
     Dosage: 120 MG, UNKNOWN
     Dates: start: 20111227, end: 20120101
  2. AMBIEN [Concomitant]
     Dosage: UNK DF, UNKNOWN
  3. CYMBALTA [Suspect]
     Dosage: 30 MG, UNKNOWN
     Dates: end: 20111016
  4. CYMBALTA [Suspect]
     Dosage: 60 MG, UNKNOWN
     Dates: start: 20111017, end: 20111226
  5. ADDERALL 5 [Concomitant]
     Dosage: UNK DF, UNKNOWN

REACTIONS (3)
  - STEVENS-JOHNSON SYNDROME [None]
  - SKIN ULCER [None]
  - MOUTH ULCERATION [None]
